FAERS Safety Report 11777877 (Version 3)
Quarter: 2016Q1

REPORT INFORMATION
  Report Type: Other
  Country: DK (occurrence: DK)
  Receive Date: 20151125
  Receipt Date: 20160301
  Transmission Date: 20160525
  Serious: Yes (Death, Other)
  Sender: FDA-Public Use
  Company Number: DK-MYLANLABS-2015M1041197

PATIENT

DRUGS (6)
  1. BRILIQUE [Suspect]
     Active Substance: TICAGRELOR
     Indication: THROMBOSIS
     Dosage: 180 MG, QD
     Route: 048
     Dates: end: 20151009
  2. FONDAPARINUX [Suspect]
     Active Substance: FONDAPARINUX
     Indication: THROMBOSIS
     Dosage: 1 DF, QD
     Route: 058
     Dates: start: 20151008, end: 20151009
  3. HJERTEMAGNYL                       /00002701/ [Suspect]
     Active Substance: ASPIRIN
     Indication: THROMBOSIS
     Dosage: 300 MG, ONCE
     Route: 048
     Dates: start: 20151008, end: 20151009
  4. SIMVASTATIN. [Concomitant]
     Active Substance: SIMVASTATIN
     Indication: HYPERCHOLESTEROLAEMIA
     Dosage: UNK
     Route: 065
  5. CENTYL MITE W/POTASSIUM CHLORIDE [Concomitant]
     Indication: HYPERTENSION
     Dosage: UNK
     Route: 065
  6. CORODIL                            /00042901/ [Concomitant]
     Indication: HYPERTENSION
     Dosage: UNK
     Route: 065

REACTIONS (3)
  - Headache [Unknown]
  - Hypotonia [Unknown]
  - Subdural haemorrhage [Fatal]

NARRATIVE: CASE EVENT DATE: 20151009
